FAERS Safety Report 15517671 (Version 3)
Quarter: 2018Q4

REPORT INFORMATION
  Report Type: Spontaneous
  Country: JP (occurrence: JP)
  Receive Date: 20181017
  Receipt Date: 20181114
  Transmission Date: 20190205
  Serious: Yes (Other)
  Sender: FDA-Public Use
  Company Number: JP-JNJFOC-20181021185

PATIENT

DRUGS (2)
  1. MYCOPHENOLATE MOFETIL. [Concomitant]
     Active Substance: MYCOPHENOLATE MOFETIL
     Route: 065
  2. REMICADE [Suspect]
     Active Substance: INFLIXIMAB
     Indication: ACUTE GRAFT VERSUS HOST DISEASE
     Dosage: 5-10 MG/KG, ONE OR TWO WEEKLY COURSES
     Route: 042

REACTIONS (3)
  - Cytomegalovirus infection [Recovered/Resolved]
  - Product use in unapproved indication [Unknown]
  - Off label use [Unknown]
